FAERS Safety Report 11897764 (Version 7)
Quarter: 2016Q2

REPORT INFORMATION
  Report Type: Spontaneous
  Country: CN (occurrence: CN)
  Receive Date: 20160108
  Receipt Date: 20160622
  Transmission Date: 20160815
  Serious: Yes (Hospitalization, Other)
  Sender: FDA-Public Use
  Company Number: CN-009507513-1601CHN000791

PATIENT
  Age: 76 Year
  Sex: Female
  Weight: 61 kg

DRUGS (20)
  1. CISPLATIN. [Concomitant]
     Active Substance: CISPLATIN
     Indication: CHEMOTHERAPY
     Dosage: 100 MG, CYCLE 1, TREATMENT REGIMEN: PT
     Route: 041
     Dates: start: 20151209, end: 20151209
  2. PREDNISOLONE. [Concomitant]
     Active Substance: PREDNISOLONE
     Indication: IMMUNE ENHANCEMENT THERAPY
     Dosage: TOTAL DAILY DOSE: 40MG; BID
     Route: 042
     Dates: start: 20151202, end: 20151204
  3. DEXAMETHASONE SODIUM PHOSPHATE. [Concomitant]
     Active Substance: DEXAMETHASONE SODIUM PHOSPHATE
     Indication: PROPHYLAXIS OF NAUSEA AND VOMITING
     Dosage: 10 MG, QD
     Route: 042
     Dates: start: 20151209, end: 20151209
  4. POLYENEPHOSPHATIDYL CHOLINE [Concomitant]
     Indication: PROPHYLAXIS OF NAUSEA AND VOMITING
     Dosage: 465 MG, BID
     Route: 042
     Dates: start: 20151209, end: 20151210
  5. PACLITAXEL. [Concomitant]
     Active Substance: PACLITAXEL
     Indication: CHEMOTHERAPY
     Dosage: 240 MG, CYCLE 1 TREATMENT REGIMEN: PT
     Route: 041
     Dates: start: 20151209, end: 20151209
  6. AMBROXOL HYDROCHLORIDE [Concomitant]
     Active Substance: AMBROXOL HYDROCHLORIDE
     Indication: PROPHYLAXIS
     Dosage: TOTAL DAILY DOSE: 60MG, BID, SPRAY
     Route: 055
     Dates: start: 20151202, end: 20151204
  7. LEVOGLUTAMIDE (+) SODIUM GUALENATE [Concomitant]
     Indication: CHRONIC GASTRITIS
     Dosage: 0.67 TID
     Route: 048
     Dates: start: 20151205, end: 20151207
  8. ELECTROLYTES (UNSPECIFIED) (+) SODIUM LACTATE [Concomitant]
     Active Substance: ELECTROLYTES NOS\SODIUM LACTATE
     Indication: FLUID REPLACEMENT
  9. ASCORBIC ACID. [Concomitant]
     Active Substance: ASCORBIC ACID
     Indication: IMMUNE ENHANCEMENT THERAPY
     Dosage: 2 G, QD
     Route: 042
     Dates: start: 20151209, end: 20151209
  10. PROMETHAZINE HYDROCHLORIDE. [Concomitant]
     Active Substance: PROMETHAZINE HYDROCHLORIDE
     Indication: SEDATIVE THERAPY
     Dosage: 50 MG, QD
     Route: 058
     Dates: start: 20151209, end: 20151209
  11. EMEND [Suspect]
     Active Substance: APREPITANT
     Dosage: 80 MG, DAY 2 AND DAY 3
     Route: 048
     Dates: start: 20151210, end: 20151211
  12. ELECTROLYTES (UNSPECIFIED) (+) SODIUM LACTATE [Concomitant]
     Active Substance: ELECTROLYTES NOS\SODIUM LACTATE
     Indication: ACID BASE BALANCE
     Dosage: 1000 ML/CC, QD
     Route: 042
     Dates: start: 20151209, end: 20151209
  13. LACTULOSE. [Concomitant]
     Active Substance: LACTULOSE
     Indication: CONSTIPATION
     Dosage: 15ML/CC, QD
     Route: 048
     Dates: start: 20151207, end: 20151208
  14. GLYCERIN. [Concomitant]
     Active Substance: GLYCERIN
     Indication: CONSTIPATION
     Dosage: 40 ML/CC BID ROUTE, DELAY EVACUANT
     Route: 054
     Dates: start: 20151202, end: 20151208
  15. PYRIDOXINE [Concomitant]
     Active Substance: PYRIDOXINE
     Indication: PROPHYLAXIS OF NAUSEA AND VOMITING
     Dosage: 200 MG, QD
     Route: 042
     Dates: start: 20151209, end: 20151209
  16. TROPISETRON HYDROCHLORIDE [Concomitant]
     Active Substance: TROPISETRON HYDROCHLORIDE
     Indication: PROPHYLAXIS OF NAUSEA AND VOMITING
     Dosage: 2 MG, BID
     Route: 042
     Dates: start: 20151209, end: 20151210
  17. DEXAMETHASONE. [Concomitant]
     Active Substance: DEXAMETHASONE
     Indication: PROPHYLAXIS OF NAUSEA AND VOMITING
     Dosage: 19.5 MG QD
     Route: 048
     Dates: start: 20151209, end: 20151209
  18. EMEND [Suspect]
     Active Substance: APREPITANT
     Indication: PROPHYLAXIS OF NAUSEA AND VOMITING
     Dosage: 125 MG, ONCE, DAY 1
     Route: 048
     Dates: start: 20151209, end: 20151209
  19. NADROPARIN CALCIUM [Concomitant]
     Active Substance: NADROPARIN CALCIUM
     Indication: THROMBOSIS PROPHYLAXIS
     Dosage: 3075 UNITS, QD
     Route: 042
     Dates: start: 20151202, end: 20151207
  20. RANITIDINE HYDROCHLORIDE. [Concomitant]
     Active Substance: RANITIDINE HYDROCHLORIDE
     Indication: ANTACID THERAPY
     Dosage: 100 MG, QD
     Route: 042
     Dates: start: 20151209, end: 20151209

REACTIONS (4)
  - Intestinal obstruction [Recovering/Resolving]
  - White blood cell count decreased [Recovering/Resolving]
  - Abdominal distension [Recovered/Resolved]
  - Hypotension [Recovered/Resolved]

NARRATIVE: CASE EVENT DATE: 20151214
